FAERS Safety Report 19359993 (Version 1)
Quarter: 2021Q2

REPORT INFORMATION
  Report Type: Report from Study
  Country: AR (occurrence: AR)
  Receive Date: 20210601
  Receipt Date: 20210601
  Transmission Date: 20210717
  Serious: Yes (Hospitalization, Other)
  Sender: FDA-Public Use
  Company Number: NVSC2021AR118597

PATIENT
  Age: 70 Year
  Sex: Male

DRUGS (2)
  1. EXFORGE [Suspect]
     Active Substance: AMLODIPINE BESYLATE\VALSARTAN
     Indication: HYPERTENSION
     Dosage: HALF OF 10/160 MG, DAILY
     Route: 065
     Dates: start: 20110801
  2. EXFORGE [Suspect]
     Active Substance: AMLODIPINE BESYLATE\VALSARTAN
     Dosage: ONE AND HALF OF 5/160 MG, DAILY
     Route: 065

REACTIONS (6)
  - Deafness [Unknown]
  - Hypertension [Unknown]
  - Cerebrovascular accident [Recovered/Resolved with Sequelae]
  - Eye pain [Unknown]
  - Oral pain [Unknown]
  - Wrong technique in product usage process [Unknown]

NARRATIVE: CASE EVENT DATE: 20110801
